FAERS Safety Report 15010663 (Version 1)
Quarter: 2018Q2

REPORT INFORMATION
  Report Type: Spontaneous
  Country: US (occurrence: US)
  Receive Date: 20180522
  Receipt Date: 20180522
  Transmission Date: 20180711
  Serious: Yes (Disabling)
  Sender: FDA-Public Use
  Company Number: None

PATIENT
  Age: 72 Year
  Sex: Female
  Weight: 65.77 kg

DRUGS (2)
  1. IMIPRAMINE HCL 10 MG [Suspect]
     Active Substance: IMIPRAMINE HYDROCHLORIDE
     Indication: DYSPHAGIA
     Route: 048
     Dates: start: 20120214
  2. IMIPRAMINE HCL 10 MG [Suspect]
     Active Substance: IMIPRAMINE HYDROCHLORIDE
     Indication: GASTROINTESTINAL DISORDER
     Route: 048
     Dates: start: 20120214

REACTIONS (1)
  - Inclusion body myositis [None]

NARRATIVE: CASE EVENT DATE: 20120214
